FAERS Safety Report 6404224-3 (Version None)
Quarter: 2009Q4

REPORT INFORMATION
  Report Type: 
  Country: None (occurrence: None)
  Receive Date: 20091013
  Receipt Date: 20090917
  Transmission Date: 20100525
  Serious: Yes (Other)
  Sender: FDA-Public Use
  Company Number: DSA_41809_2009

PATIENT
  Age: 84 Year
  Sex: Male

DRUGS (1)
  1. VASOTEC [Suspect]
     Indication: DRUG USE FOR UNKNOWN INDICATION
     Dosage: 2.5 MG QD ORAL
     Route: 048
     Dates: start: 20090625, end: 20090916

REACTIONS (1)
  - HAEMORRHAGE SUBCUTANEOUS [None]
